FAERS Safety Report 4597807-7 (Version None)
Quarter: 2005Q1

REPORT INFORMATION
  Report Type: 
  Country: None (occurrence: None)
  Receive Date: 20050301
  Receipt Date: 20050216
  Transmission Date: 20050727
  Serious: Yes (Death, Hospitalization, Disabling)
  Sender: FDA-Public Use
  Company Number: JP-SHR-03-018473

PATIENT
  Age: 68 Year
  Sex: Male
  Weight: 50 kg

DRUGS (16)
  1. FLUDARA [Suspect]
     Indication: CHRONIC LYMPHOCYTIC LEUKAEMIA
     Dosage: 29 MG, CYCLE X 5D, INTRAVENOUS
     Route: 042
     Dates: start: 20030304, end: 20030308
  2. FLUDARA [Suspect]
     Indication: CHRONIC LYMPHOCYTIC LEUKAEMIA
     Dosage: 29 MG, CYCLE X 5D, INTRAVENOUS
     Route: 042
     Dates: start: 20030327, end: 20030331
  3. FUNGIZONE (AMPHOTERICIN B) INJECTION [Concomitant]
  4. FUNGUARD (MICAFUNGIN SODIUM) INJECTION [Concomitant]
  5. MAXIPIME [Concomitant]
  6. OMEGACIN (BIAPENEM) INJECTION [Concomitant]
  7. AZACTAM (ARGININE, AZTREONAM) INJECTION [Concomitant]
  8. DIGOSIN (DIGOXIN) INJECTION [Concomitant]
  9. LASIX (FUROSEMIDE SODIUM) INJECTION [Concomitant]
  10. VANCOMYCIN (VANCOMYCIN) INJECTION [Concomitant]
  11. ALOSITOL TABLET [Concomitant]
  12. PN-TWIN NO. 1 (AMINO ACIDS NOS, CARBOHYDRATES NOS, ELECTROLYTES NOS) I [Concomitant]
  13. SALINE (INEJCTION) [Concomitant]
  14. ASPARA K (ASPARTATE POTASSIUM) [Concomitant]
  15. VITAJECT INJECTION [Concomitant]
  16. GLUCOSE 5% TZ) INJECTION [Concomitant]

REACTIONS (6)
  - BLOOD CREATININE INCREASED [None]
  - BLOOD UREA INCREASED [None]
  - GASTROINTESTINAL HAEMORRHAGE [None]
  - INFECTION [None]
  - RENAL DISORDER [None]
  - THROMBOCYTOPENIA [None]
